FAERS Safety Report 6472548-X (Version None)
Quarter: 2009Q4

REPORT INFORMATION
  Report Type: 
  Country: None (occurrence: None)
  Receive Date: 20091125
  Receipt Date: 20091110
  Transmission Date: 20100525
  Serious: Yes (Hospitalization)
  Sender: FDA-Public Use
  Company Number: DSA_29638_2007

PATIENT
  Age: 86 Year
  Sex: Female

DRUGS (8)
  1. ENALAPRIL MALEATE AND HYDROCHLOROTHIAZIDE [Suspect]
     Indication: HYPERTENSION
     Dosage: (20-12.5 MG DAILY ORAL)
     Route: 048
     Dates: end: 20070117
  2. RILMENIDINE [Suspect]
     Indication: HYPERTENSION
     Dosage: (1 MG QD ORAL)
     Route: 048
     Dates: end: 20070117
  3. FUROSEMIDE [Suspect]
     Indication: HYPERTENSION
     Dosage: (20 MG BID ORAL)
     Route: 048
     Dates: end: 20070117
  4. AMIODARONE HCL [Concomitant]
  5. AMLODIPINE BESYLATE [Concomitant]
  6. FENOFIBRATE [Concomitant]
  7. FLUINDIONE [Concomitant]
  8. HYDROXYZINE [Concomitant]

REACTIONS (6)
  - ANAEMIA [None]
  - CONDITION AGGRAVATED [None]
  - DEHYDRATION [None]
  - GASTROENTERITIS [None]
  - HAEMORRHAGE [None]
  - RENAL FAILURE ACUTE [None]
